FAERS Safety Report 20742313 (Version 1)
Quarter: 2022Q2

REPORT INFORMATION
  Report Type: Spontaneous
  Country: US (occurrence: US)
  Receive Date: 20220424
  Receipt Date: 20220424
  Transmission Date: 20220720
  Serious: No
  Sender: FDA-Public Use
  Company Number: US-TEVA-2022-US-2022341

PATIENT
  Age: 52 Year
  Sex: Male

DRUGS (1)
  1. COPAXONE [Suspect]
     Active Substance: GLATIRAMER ACETATE
     Dosage: FORM STRENGTH AND ROUTE OF ADMIN: UNKNOWN
     Route: 065

REACTIONS (2)
  - Injection site paraesthesia [Recovered/Resolved]
  - Urticaria [Unknown]
